FAERS Safety Report 5880294-6 (Version None)
Quarter: 2008Q3

REPORT INFORMATION
  Report Type: 
  Country: None (occurrence: None)
  Receive Date: 20080912
  Receipt Date: 20080904
  Transmission Date: 20090109
  Serious: Yes (Hospitalization)
  Sender: FDA-Public Use
  Company Number: FR-PFIZER INC-2008074776

PATIENT
  Sex: Female

DRUGS (4)
  1. AMLOD [Suspect]
     Route: 048
  2. SECTRAL [Suspect]
     Route: 048
  3. PRAVASTATIN [Concomitant]
  4. ANASTROZOLE [Concomitant]
     Route: 048

REACTIONS (2)
  - FALL [None]
  - HYPOTENSION [None]
